FAERS Safety Report 13365508 (Version 1)
Quarter: 2017Q1

REPORT INFORMATION
  Report Type: Spontaneous
  Country: US (occurrence: US)
  Receive Date: 20170323
  Receipt Date: 20170323
  Transmission Date: 20170429
  Serious: No
  Sender: FDA-Public Use
  Company Number: US-WARNER CHILCOTT-2016-000715

PATIENT
  Sex: Female

DRUGS (3)
  1. ESTRADIOL. [Concomitant]
     Active Substance: ESTRADIOL
     Dosage: UNKNOWN DOSE DAILY
     Route: 048
  2. VAGIFEM [Concomitant]
     Active Substance: ESTRADIOL
     Dosage: 10 ?G, UNK
  3. ESTRACE [Suspect]
     Active Substance: ESTRADIOL
     Indication: CYSTOCELE REPAIR
     Dosage: 0.5 G, TWO TIMES A WEEK
     Route: 065

REACTIONS (1)
  - Product use issue [Unknown]
